FAERS Safety Report 11104252 (Version 1)
Quarter: 2015Q2

REPORT INFORMATION
  Report Type: Spontaneous
  Country: NL (occurrence: NL)
  Receive Date: 20150511
  Receipt Date: 20150511
  Transmission Date: 20150821
  Serious: Yes (Hospitalization)
  Sender: FDA-Public Use
  Company Number: NL-TEVA-561435ISR

PATIENT
  Age: 28 Year
  Sex: Female
  Weight: 84 kg

DRUGS (5)
  1. GOLIMUMAB INJVLST 100MG/ML [Suspect]
     Active Substance: GOLIMUMAB
     Indication: PSORIATIC ARTHROPATHY
     Dosage: RECEIVED IT ONCE, TREATMENT DISCONTINUED AFTER THAT
     Route: 058
     Dates: start: 20150330, end: 20150331
  2. NAPROXEN TABLET 500MG [Concomitant]
     Active Substance: NAPROXEN
     Dosage: 1000 MILLIGRAM DAILY; TWICE DAILY ONE
     Route: 048
  3. PARACETAMOL TABLET  500MG [Concomitant]
     Active Substance: ACETAMINOPHEN
     Dosage: AS REQUIRED 4 TIMES DAILY 2
     Route: 048
  4. PREDNISOLON TABLET  5MG [Concomitant]
     Dosage: 5 MILLIGRAM DAILY; ONCE DAILY ONE
     Route: 048
  5. METHOTREXATE [Suspect]
     Active Substance: METHOTREXATE
     Indication: PSORIATIC ARTHROPATHY
     Route: 058
     Dates: start: 20140826, end: 20150331

REACTIONS (1)
  - Abdominal pain [Recovered/Resolved]

NARRATIVE: CASE EVENT DATE: 20150331
